FAERS Safety Report 4957575-3 (Version None)
Quarter: 2006Q1

REPORT INFORMATION
  Report Type: 
  Country: None (occurrence: None)
  Receive Date: 20060330
  Receipt Date: 20060320
  Transmission Date: 20060701
  Serious: Yes (Other)
  Sender: FDA-Public Use
  Company Number: PHNR2006AU00596

PATIENT
  Sex: Male

DRUGS (1)
  1. CLOZARIL [Suspect]
     Dosage: 0-175 MG DAILY
     Route: 048
     Dates: start: 20060310, end: 20060317

REACTIONS (3)
  - CARDIAC DISORDER [None]
  - INFLAMMATION [None]
  - TROPONIN INCREASED [None]
